FAERS Safety Report 17116363 (Version 1)
Quarter: 2019Q4

REPORT INFORMATION
  Report Type: Spontaneous
  Country: DE (occurrence: DE)
  Receive Date: 20191205
  Receipt Date: 20191205
  Transmission Date: 20200122
  Serious: Yes (Hospitalization)
  Sender: FDA-Public Use
  Company Number: DE-US-PROVELL PHARMACEUTICALS LLC-9132571

PATIENT
  Age: 90 Year
  Sex: Female

DRUGS (2)
  1. L-THYROXINE [Suspect]
     Active Substance: LEVOTHYROXINE
     Dosage: DOSE REINTRODUCED
     Dates: start: 1993, end: 1993
  2. L-THYROXINE [Suspect]
     Active Substance: LEVOTHYROXINE
     Indication: POST PROCEDURAL HYPOTHYROIDISM
     Dates: start: 1993

REACTIONS (3)
  - Gait disturbance [Unknown]
  - Hypokinesia [Unknown]
  - Muscular weakness [Unknown]

NARRATIVE: CASE EVENT DATE: 1993
